FAERS Safety Report 9036639 (Version 1)
Quarter: 2013Q1

REPORT INFORMATION
  Report Type: Report from Study
  Country: US (occurrence: US)
  Receive Date: 20130129
  Receipt Date: 20130129
  Transmission Date: 20140127
  Serious: No
  Sender: FDA-Public Use
  Company Number: US-ABBOTT-12P-163-0888870-00

PATIENT
  Age: 43 None
  Sex: Female

DRUGS (2)
  1. HUMIRA 40 MG/0.8 ML PEN [Suspect]
     Indication: RHEUMATOID ARTHRITIS
     Dosage: 1 INJECTION, EVERY 2 WEEKS
     Dates: start: 201109, end: 201111
  2. METHOTREXATE [Concomitant]
     Indication: PRODUCT USED FOR UNKNOWN INDICATION

REACTIONS (5)
  - Injection site reaction [Unknown]
  - Injection site pain [Unknown]
  - Injection site discolouration [Unknown]
  - Injection site nodule [Unknown]
  - Headache [Unknown]
